FAERS Safety Report 6710117-4 (Version None)
Quarter: 2010Q2

REPORT INFORMATION
  Report Type: 
  Country: None (occurrence: None)
  Receive Date: 20100430
  Receipt Date: 20091209
  Transmission Date: 20101027
  Serious: Yes (Hospitalization)
  Sender: FDA-Public Use
  Company Number: LEO-2010-00312

PATIENT
  Age: 76 Year
  Sex: Female

DRUGS (1)
  1. INNOHEP [Suspect]
     Indication: ANTICOAGULANT THERAPY
     Dosage: SUBCUTANEOUS
     Route: 058
     Dates: start: 20080609, end: 20080611

REACTIONS (2)
  - ISCHAEMIC STROKE [None]
  - OFF LABEL USE [None]
